FAERS Safety Report 8479692-6 (Version None)
Quarter: 2012Q2

REPORT INFORMATION
  Report Type: 
  Country: None (occurrence: None)
  Receive Date: 20120629
  Receipt Date: 20120621
  Transmission Date: 20120825
  Serious: Yes (Other)
  Sender: FDA-Public Use
  Company Number: US-ABBOTT-12P-163-0948698-00

PATIENT
  Sex: Female
  Weight: 50.848 kg

DRUGS (2)
  1. HUMIRA [Suspect]
     Indication: CROHN'S DISEASE
     Route: 058
     Dates: start: 20100601, end: 20120503
  2. PERCOCET [Concomitant]
     Indication: PROCEDURAL PAIN
     Dates: start: 20120501

REACTIONS (3)
  - ANAL ABSCESS [None]
  - THROMBOSIS [None]
  - ASTHENIA [None]
